FAERS Safety Report 4684238-4 (Version None)
Quarter: 2005Q2

REPORT INFORMATION
  Report Type: 
  Country: None (occurrence: None)
  Receive Date: 20050531
  Receipt Date: 20050127
  Transmission Date: 20051028
  Serious: Yes (Hospitalization)
  Sender: FDA-Public Use
  Company Number: 200510783US

PATIENT
  Age: 56 Year
  Sex: Male

DRUGS (2)
  1. LOVENOX [Suspect]
     Indication: HIP SURGERY
  2. PAIN MEDICATIONS [Concomitant]

REACTIONS (1)
  - ANGIONEUROTIC OEDEMA [None]
